FAERS Safety Report 10781329 (Version 1)
Quarter: 2015Q1

REPORT INFORMATION
  Report Type: Spontaneous
  Country: US (occurrence: None)
  Receive Date: 20150209
  Receipt Date: 20150209
  Transmission Date: 20150721
  Serious: Yes (Hospitalization)
  Sender: FDA-Public Use
  Company Number: None

PATIENT
  Age: 8 Year
  Sex: Male

DRUGS (2)
  1. IFOSFAMIDE. [Suspect]
     Active Substance: IFOSFAMIDE
     Dates: start: 20150121, end: 20150125
  2. ETOPOSIDE. [Suspect]
     Active Substance: ETOPOSIDE
     Dates: start: 20150121, end: 20150125

REACTIONS (11)
  - Disseminated intravascular coagulation [None]
  - Pupil fixed [None]
  - Pulmonary oedema [None]
  - Wound [None]
  - Clostridium test positive [None]
  - Pyrexia [None]
  - Brain herniation [None]
  - Seizure [None]
  - Blood pressure decreased [None]
  - Intracranial pressure increased [None]
  - Confusional state [None]

NARRATIVE: CASE EVENT DATE: 20150203
